FAERS Safety Report 9213975 (Version 1)
Quarter: 2013Q2

REPORT INFORMATION
  Report Type: Spontaneous
  Country: US (occurrence: None)
  Receive Date: 20130404
  Receipt Date: 20130404
  Transmission Date: 20140414
  Serious: Yes (Hospitalization)
  Sender: FDA-Public Use
  Company Number: None

PATIENT
  Age: 84 Year
  Sex: Male
  Weight: 88 kg

DRUGS (3)
  1. CYCLOPHOSPHAMIDE [Suspect]
     Dates: end: 20090819
  2. FLUDARABINE PHOSPHATE [Suspect]
     Dates: end: 20090819
  3. RITUXIMAB (MOAB C2B8 ANTI CD20, CHIMERIC) [Suspect]
     Dates: end: 20090817

REACTIONS (1)
  - Myelodysplastic syndrome [None]
